FAERS Safety Report 4918966-X (Version None)
Quarter: 2006Q1

REPORT INFORMATION
  Report Type: 
  Country: None (occurrence: None)
  Receive Date: 20060222
  Receipt Date: 20060216
  Transmission Date: 20060701
  Serious: Yes (Other)
  Sender: FDA-Public Use
  Company Number: SE-GLAXOSMITHKLINE-B0412624A

PATIENT
  Age: 61 Year
  Sex: Female

DRUGS (2)
  1. ZYBAN [Suspect]
     Dosage: 100MG PER DAY
     Route: 048
     Dates: start: 20051201, end: 20060124
  2. NICOTINE [Concomitant]

REACTIONS (1)
  - PSORIASIS [None]
